FAERS Safety Report 19422125 (Version 1)
Quarter: 2021Q2

REPORT INFORMATION
  Report Type: Spontaneous
  Country: AU (occurrence: AU)
  Receive Date: 20210616
  Receipt Date: 20210616
  Transmission Date: 20210717
  Serious: Yes (Hospitalization)
  Sender: FDA-Public Use
  Company Number: None

PATIENT
  Age: 49 Year
  Sex: Female
  Weight: 72 kg

DRUGS (2)
  1. VENTOLIN [Concomitant]
     Active Substance: ALBUTEROL SULFATE
  2. PEPCID AC [Suspect]
     Active Substance: FAMOTIDINE
     Indication: DYSPEPSIA
     Dosage: ?          QUANTITY:1 TABLET(S);?
     Route: 048
     Dates: start: 20210501, end: 20210511

REACTIONS (13)
  - Dyspepsia [None]
  - Panic attack [None]
  - Anxiety [None]
  - Chest pain [None]
  - Paraesthesia [None]
  - Insomnia [None]
  - Vomiting [None]
  - Restlessness [None]
  - Decreased appetite [None]
  - Diarrhoea [None]
  - Feeling abnormal [None]
  - Disturbance in attention [None]
  - Nausea [None]

NARRATIVE: CASE EVENT DATE: 20210501
